FAERS Safety Report 6317611-9 (Version None)
Quarter: 2009Q3

REPORT INFORMATION
  Report Type: 
  Country: None (occurrence: None)
  Receive Date: 20090821
  Receipt Date: 20090818
  Transmission Date: 20100115
  Serious: Yes (Other)
  Sender: FDA-Public Use
  Company Number: US-JNJCH-2009022389

PATIENT
  Age: 68 Year
  Sex: Female
  Weight: 87.1 kg

DRUGS (2)
  1. ZYRTEC [Suspect]
     Indication: RHINITIS ALLERGIC
     Route: 048
  2. URSODIOL [Concomitant]
     Indication: LIVER DISORDER
     Route: 065

REACTIONS (2)
  - BILIARY CIRRHOSIS PRIMARY [None]
  - WRONG DRUG ADMINISTERED [None]
